FAERS Safety Report 16472621 (Version 2)
Quarter: 2019Q3

REPORT INFORMATION
  Report Type: Report from Study
  Country: US (occurrence: US)
  Receive Date: 20190625
  Receipt Date: 20190703
  Transmission Date: 20191004
  Serious: Yes (Hospitalization, Other)
  Sender: FDA-Public Use
  Company Number: US-ROCHE-2240087

PATIENT
  Age: 61 Year
  Sex: Male

DRUGS (19)
  1. VENETOCLAX. [Suspect]
     Active Substance: VENETOCLAX
     Indication: CHRONIC LYMPHOCYTIC LEUKAEMIA
     Dosage: ONGOING: YES
     Route: 048
     Dates: start: 201806
  2. VENETOCLAX. [Suspect]
     Active Substance: VENETOCLAX
     Dosage: DURATION 20 DAYS
     Route: 048
     Dates: start: 20180807, end: 20180827
  3. VENETOCLAX. [Suspect]
     Active Substance: VENETOCLAX
     Dosage: DURATION 17 DAYS
     Route: 048
     Dates: start: 20180710, end: 20180727
  4. VENETOCLAX. [Suspect]
     Active Substance: VENETOCLAX
     Dosage: DURATION 6 DAYS
     Route: 048
     Dates: start: 20180724, end: 20180730
  5. RITUXIMAB. [Suspect]
     Active Substance: RITUXIMAB
     Route: 065
     Dates: start: 201808, end: 201808
  6. ZYTIGA [Suspect]
     Active Substance: ABIRATERONE ACETATE
     Indication: PROSTATE CANCER
     Route: 065
  7. VITAMIN C [Concomitant]
     Active Substance: ASCORBIC ACID
     Indication: PRODUCT USED FOR UNKNOWN INDICATION
  8. VENETOCLAX. [Suspect]
     Active Substance: VENETOCLAX
     Route: 048
     Dates: start: 20180717, end: 20180723
  9. VENETOCLAX. [Suspect]
     Active Substance: VENETOCLAX
     Route: 048
     Dates: start: 20180904, end: 20180909
  10. TRELSTAR [Concomitant]
     Active Substance: TRIPTORELIN PAMOATE
     Indication: PROSTATE CANCER
     Route: 065
  11. VENETOCLAX. [Suspect]
     Active Substance: VENETOCLAX
     Dosage: DURATION 6 DAYS
     Route: 048
     Dates: start: 20180731, end: 20180806
  12. CALCIUM GLUCONATE. [Concomitant]
     Active Substance: CALCIUM GLUCONATE
     Indication: PRODUCT USED FOR UNKNOWN INDICATION
  13. PREDNISONE. [Concomitant]
     Active Substance: PREDNISONE
  14. ENTYVIO [Concomitant]
     Active Substance: VEDOLIZUMAB
     Route: 065
     Dates: start: 201807
  15. ALLOPURINOL. [Concomitant]
     Active Substance: ALLOPURINOL
     Indication: PRODUCT USED FOR UNKNOWN INDICATION
     Route: 065
  16. TYLENOL [Concomitant]
     Active Substance: ACETAMINOPHEN
     Indication: PRODUCT USED FOR UNKNOWN INDICATION
     Route: 048
  17. RITUXIMAB. [Suspect]
     Active Substance: RITUXIMAB
     Indication: CHRONIC LYMPHOCYTIC LEUKAEMIA
     Route: 065
     Dates: start: 20180813, end: 20180813
  18. BENDAMUSTINE [Concomitant]
     Active Substance: BENDAMUSTINE
     Indication: CHRONIC LYMPHOCYTIC LEUKAEMIA
  19. HUMIRA [Suspect]
     Active Substance: ADALIMUMAB
     Indication: COLITIS ULCERATIVE
     Route: 058
     Dates: start: 2009

REACTIONS (42)
  - Bursitis [Recovering/Resolving]
  - Neutrophil count increased [Not Recovered/Not Resolved]
  - Rash [Recovering/Resolving]
  - Skin mass [Recovering/Resolving]
  - Muscular weakness [Recovering/Resolving]
  - Pneumonia [Unknown]
  - Feeling abnormal [Not Recovered/Not Resolved]
  - Chills [Recovered/Resolved]
  - Exercise tolerance decreased [Unknown]
  - Vomiting [Not Recovered/Not Resolved]
  - Malaise [Unknown]
  - Lymphadenopathy [Recovered/Resolved]
  - Prostate cancer stage IV [Not Recovered/Not Resolved]
  - Loss of consciousness [Recovered/Resolved]
  - Neutropenia [Recovered/Resolved]
  - White blood cell count abnormal [Unknown]
  - Cough [Not Recovered/Not Resolved]
  - Fatigue [Not Recovered/Not Resolved]
  - Vertigo [Unknown]
  - Axillary mass [Recovered/Resolved]
  - Haemoglobin decreased [Recovered/Resolved]
  - Squamous cell carcinoma of skin [Recovering/Resolving]
  - Prostatic specific antigen increased [Not Recovered/Not Resolved]
  - Chronic lymphocytic leukaemia [Recovering/Resolving]
  - Oropharyngeal pain [Recovering/Resolving]
  - Depressed mood [Recovering/Resolving]
  - Hormone-refractory prostate cancer [Not Recovered/Not Resolved]
  - Malaise [Recovered/Resolved]
  - Blood glucose increased [Not Recovered/Not Resolved]
  - Nausea [Recovered/Resolved]
  - Nasopharyngitis [Not Recovered/Not Resolved]
  - Pallor [Unknown]
  - Poor quality sleep [Recovering/Resolving]
  - Dyspnoea [Unknown]
  - Fungal skin infection [Recovered/Resolved]
  - Dyspnoea [Recovering/Resolving]
  - Blood pressure decreased [Recovered/Resolved]
  - Lymphocyte count decreased [Not Recovered/Not Resolved]
  - Myalgia [Recovering/Resolving]
  - Tremor [Not Recovered/Not Resolved]
  - Infection [Not Recovered/Not Resolved]
  - Red blood cell count increased [Unknown]

NARRATIVE: CASE EVENT DATE: 2009
